FAERS Safety Report 7782147-5 (Version None)
Quarter: 2011Q3

REPORT INFORMATION
  Report Type: 
  Country: None (occurrence: None)
  Receive Date: 20110927
  Receipt Date: 20110920
  Transmission Date: 20111222
  Serious: Yes (Other)
  Sender: FDA-Public Use
  Company Number: US-CELGENEUS-163-21880-11092678

PATIENT
  Age: 61 Year
  Sex: Male

DRUGS (4)
  1. VALTREX [Concomitant]
     Dosage: 500
     Route: 065
  2. REVLIMID [Suspect]
     Dosage: 10 MILLIGRAM
     Route: 048
     Dates: start: 20110717
  3. REVLIMID [Suspect]
     Dosage: 10 MILLIGRAM
     Route: 048
     Dates: start: 20090101
  4. DIOVAN [Concomitant]
     Dosage: 160 MILLIGRAM
     Route: 065

REACTIONS (1)
  - SUPERFICIAL SPREADING MELANOMA STAGE I [None]
